FAERS Safety Report 5369254-1 (Version None)
Quarter: 2007Q2

REPORT INFORMATION
  Report Type: 
  Country: None (occurrence: None)
  Receive Date: 20070625
  Receipt Date: 20070618
  Transmission Date: 20071010
  Serious: Yes (Hospitalization)
  Sender: FDA-Public Use
  Company Number: NO-ELI_LILLY_AND_COMPANY-NO200706005074

PATIENT
  Age: 17 Year
  Sex: Male

DRUGS (6)
  1. STRATTERA [Suspect]
     Indication: ATTENTION DEFICIT/HYPERACTIVITY DISORDER
     Dosage: 70 MG, DAILY (1/D)
     Route: 048
     Dates: start: 20061107, end: 20070504
  2. CITALOPRAM HYDROBROMIDE [Concomitant]
     Indication: DEPRESSIVE SYMPTOM
     Dosage: 40 MG, DAILY (1/D)
     Route: 065
     Dates: start: 20060101
  3. NOZINAN [Concomitant]
     Indication: SCHIZOPHRENIA
     Dosage: 150 MG, DAILY (1/D)
     Route: 065
  4. ZYPREXA [Concomitant]
     Indication: SCHIZOPHRENIA
     Dosage: 15 MG, DAILY (1/D)
     Route: 065
     Dates: start: 20060101
  5. CLOZAPINE [Concomitant]
     Indication: SCHIZOPHRENIA
     Dosage: 25 MG, DAILY (1/D)
     Route: 065
     Dates: start: 20070420
  6. CLOZAPINE [Concomitant]
     Dosage: 175 MG, DAILY (1/D)
     Route: 065
     Dates: end: 20070515

REACTIONS (2)
  - ASPARTATE AMINOTRANSFERASE INCREASED [None]
  - PERICARDITIS [None]
